FAERS Safety Report 5179174-3 (Version None)
Quarter: 2006Q4

REPORT INFORMATION
  Report Type: 
  Country: None (occurrence: None)
  Receive Date: 20061211
  Receipt Date: 20061127
  Transmission Date: 20070319
  Serious: Yes (Hospitalization)
  Sender: FDA-Public Use
  Company Number: HQWYE644228NOV06

PATIENT
  Age: 41 Year
  Sex: Male
  Weight: 90.8 kg

DRUGS (6)
  1. EFFEXOR XR [Suspect]
     Indication: DEPRESSION
     Dosage: 75 MG 1X PER 1 DAY, ORAL; SEE IMAGE
     Route: 048
     Dates: start: 20060801, end: 20061001
  2. EFFEXOR XR [Suspect]
     Indication: DEPRESSION
     Dosage: 75 MG 1X PER 1 DAY, ORAL; SEE IMAGE
     Route: 048
     Dates: start: 20061001, end: 20061124
  3. EFFEXOR XR [Suspect]
     Indication: DEPRESSION
     Dosage: 75 MG 1X PER 1 DAY, ORAL; SEE IMAGE
     Route: 048
     Dates: start: 20061125
  4. IBUPROFEN [Concomitant]
  5. HEPARIN [Concomitant]
  6. GLUCOSE (GLUCOSE INJECTION) [Concomitant]

REACTIONS (7)
  - ANGIOPATHY [None]
  - BLOOD PRESSURE INCREASED [None]
  - INCREASED TENDENCY TO BRUISE [None]
  - INFLAMMATION [None]
  - OEDEMA PERIPHERAL [None]
  - PURULENCE [None]
  - RASH ERYTHEMATOUS [None]
